FAERS Safety Report 4832882-3 (Version None)
Quarter: 2006Q1

REPORT INFORMATION
  Report Type: 
  Country: None (occurrence: None)
  Receive Date: 20051121
  Receipt Date: 20050530
  Transmission Date: 20060701
  Serious: Yes (Hospitalization)
  Sender: FDA-Public Use
  Company Number: NL-GLAXOSMITHKLINE-B0382976A

PATIENT
  Age: 71 Year
  Sex: Male
  Weight: 96.8 kg

DRUGS (5)
  1. GW679769 [Concomitant]
     Route: 048
     Dates: start: 20050525, end: 20050527
  2. ONDANSETRON HCL [Suspect]
     Dosage: 32MG SINGLE DOSE
     Route: 042
     Dates: start: 20050525, end: 20050525
  3. DEXAMETHASONE TAB [Suspect]
     Route: 048
     Dates: start: 20050525, end: 20050528
  4. CISPLATIN [Concomitant]
     Indication: CHEMOTHERAPY
     Route: 042
     Dates: start: 20050525
  5. VINORELBINE [Concomitant]
     Indication: CHEMOTHERAPY
     Route: 042
     Dates: start: 20050525

REACTIONS (2)
  - NAUSEA [None]
  - PAIN [None]
